FAERS Safety Report 9119615 (Version 1)
Quarter: 2013Q1

REPORT INFORMATION
  Report Type: Spontaneous
  Country: DE (occurrence: DE)
  Receive Date: 20130207
  Receipt Date: 20130207
  Transmission Date: 20140127
  Serious: Yes (Other)
  Sender: FDA-Public Use
  Company Number: DE-ASTRAZENECA-2013SE07471

PATIENT
  Sex: Male

DRUGS (1)
  1. SEROQUEL PROLONG [Suspect]
     Dosage: 400MG, DAILY; GRADUALLY REDUCED TO 150MG
     Route: 048
     Dates: start: 201211

REACTIONS (2)
  - Blood alkaline phosphatase increased [Unknown]
  - Gamma-glutamyltransferase increased [Unknown]
